FAERS Safety Report 15056847 (Version 1)
Quarter: 2018Q2

REPORT INFORMATION
  Report Type: Spontaneous
  Country: US (occurrence: US)
  Receive Date: 20180604
  Receipt Date: 20180604
  Transmission Date: 20180711
  Serious: Yes (Other)
  Sender: FDA-Public Use
  Company Number: None

PATIENT
  Age: 46 Year
  Sex: Female
  Weight: 68.4 kg

DRUGS (4)
  1. BUPROPION XL MFG ACTAVIS OVAL WHITE TABLET WITH 142 ON IT. [Suspect]
     Active Substance: BUPROPION HYDROCHLORIDE
     Indication: ATTENTION DEFICIT/HYPERACTIVITY DISORDER
     Dosage: ?          QUANTITY:30 DF DOSAGE FORM;?
     Route: 048
     Dates: start: 20150601
  2. BUPROPION XL MFG ACTAVIS OVAL WHITE TABLET WITH 142 ON IT. [Suspect]
     Active Substance: BUPROPION HYDROCHLORIDE
     Indication: DEPRESSION
     Dosage: ?          QUANTITY:30 DF DOSAGE FORM;?
     Route: 048
     Dates: start: 20150601
  3. PROGESTERONE. [Suspect]
     Active Substance: PROGESTERONE
  4. MULTIVITAMIN [Concomitant]
     Active Substance: VITAMINS

REACTIONS (7)
  - Crying [None]
  - Weight increased [None]
  - Apathy [None]
  - Therapeutic response changed [None]
  - Irritability [None]
  - Loss of libido [None]
  - Drug ineffective [None]

NARRATIVE: CASE EVENT DATE: 20171001
